FAERS Safety Report 8910037 (Version 1)
Quarter: 2012Q4

REPORT INFORMATION
  Report Type: 
  Country: RO (occurrence: RO)
  Receive Date: 20121115
  Receipt Date: 20121115
  Transmission Date: 20130627
  Serious: Yes (Hospitalization)
  Sender: FDA-Public Use
  Company Number: RO-ABBOTT-12P-135-1006747-00

PATIENT
  Age: 61 Year
  Sex: Female
  Weight: 93 kg

DRUGS (1)
  1. HUMIRA [Suspect]
     Indication: PSORIASIS
     Dosage: 40 mg/2 weeks
     Route: 058
     Dates: start: 20120920, end: 20121025

REACTIONS (7)
  - Vasculitic rash [Recovering/Resolving]
  - Pyrexia [Recovering/Resolving]
  - General physical condition abnormal [Recovering/Resolving]
  - Chills [Unknown]
  - Vomiting [Unknown]
  - Myalgia [Unknown]
  - Interstitial lung disease [Unknown]
